FAERS Safety Report 8999859 (Version 1)
Quarter: 2013Q1

REPORT INFORMATION
  Report Type: Spontaneous
  Country: US (occurrence: US)
  Receive Date: 20130102
  Receipt Date: 20130102
  Transmission Date: 20140127
  Serious: Yes (Other)
  Sender: FDA-Public Use
  Company Number: US-PFIZER INC-2012285941

PATIENT
  Age: 82 Year
  Sex: Female

DRUGS (3)
  1. ENBREL [Suspect]
     Indication: RHEUMATOID ARTHRITIS
     Dosage: 50 UNK, WEEKLY
     Route: 058
     Dates: start: 2004, end: 20121106
  2. METHOTREXATE SODIUM [Suspect]
     Dosage: 20 UNK, QWK
     Route: 048
     Dates: start: 2004
  3. CELEBREX [Concomitant]
     Indication: RHEUMATOID ARTHRITIS
     Dosage: 200 UNK, QD
     Route: 048

REACTIONS (2)
  - Mycosis fungoides [Not Recovered/Not Resolved]
  - Lymphomatoid papulosis [Not Recovered/Not Resolved]
